FAERS Safety Report 14588832 (Version 2)
Quarter: 2018Q1

REPORT INFORMATION
  Report Type: Report from Study
  Country: US (occurrence: US)
  Receive Date: 20180301
  Receipt Date: 20180312
  Transmission Date: 20180509
  Serious: Yes (Hospitalization, Other)
  Sender: FDA-Public Use
  Company Number: US-GILEAD-2018-0323669

PATIENT
  Age: 63 Year
  Sex: Female

DRUGS (2)
  1. IDELALISIB [Suspect]
     Active Substance: IDELALISIB
     Indication: NON-HODGKIN^S LYMPHOMA
     Dosage: 100 MG, QD
     Route: 048
     Dates: start: 20170607, end: 20180121
  2. IDELALISIB [Suspect]
     Active Substance: IDELALISIB
     Dosage: 100 MG, QD
     Route: 048
     Dates: start: 20180126

REACTIONS (3)
  - Off label use [Unknown]
  - Memory impairment [Recovering/Resolving]
  - Pneumonia [Recovered/Resolved]

NARRATIVE: CASE EVENT DATE: 201801
